FAERS Safety Report 7671246-4 (Version None)
Quarter: 2011Q3

REPORT INFORMATION
  Report Type: 
  Country: None (occurrence: None)
  Receive Date: 20110809
  Receipt Date: 20110726
  Transmission Date: 20111222
  Serious: Yes (Other)
  Sender: FDA-Public Use
  Company Number: US-ELI_LILLY_AND_COMPANY-US201108000851

PATIENT
  Sex: Female

DRUGS (20)
  1. FLEXERIL [Concomitant]
  2. QVAR 40 [Concomitant]
  3. LEVEMIR [Concomitant]
  4. CARVEDILOL [Concomitant]
  5. HIDROXIZIN [Concomitant]
  6. SINGULAIR [Concomitant]
  7. TEKTURNA [Concomitant]
  8. PROAIR HFA [Concomitant]
  9. CALTRATE + VITAMIN D [Concomitant]
  10. EPIPEN [Concomitant]
  11. JANUVIA [Concomitant]
  12. FORTEO [Suspect]
     Indication: OSTEOPOROSIS
     Dosage: 20 UG, QD
     Route: 065
     Dates: start: 20091224
  13. LOSARTAN POTASSIUM [Concomitant]
  14. FORTEO [Suspect]
     Dosage: 20 UG, QD
     Route: 065
  15. CYMBALTA [Concomitant]
  16. ZYRTEC [Concomitant]
  17. PATADAY [Concomitant]
  18. METFORMIN HCL [Concomitant]
  19. WELCHOL [Concomitant]
  20. NASONEX [Concomitant]

REACTIONS (6)
  - FOOT FRACTURE [None]
  - HYPERSENSITIVITY [None]
  - FALL [None]
  - DEPRESSED LEVEL OF CONSCIOUSNESS [None]
  - HYPERTENSION [None]
  - MEMORY IMPAIRMENT [None]
